FAERS Safety Report 10035954 (Version 2)
Quarter: 2014Q1

REPORT INFORMATION
  Report Type: Spontaneous
  Country: None (occurrence: AU)
  Receive Date: 20140325
  Receipt Date: 20140331
  Transmission Date: 20141002
  Serious: Yes (Hospitalization, Other)
  Sender: FDA-Public Use
  Company Number: AU-TEVA-470070ISR

PATIENT
  Sex: Male

DRUGS (1)
  1. COPAXONE [Suspect]
     Route: 065
     Dates: start: 20140206

REACTIONS (2)
  - Colitis ulcerative [Recovered/Resolved]
  - Exposure during breast feeding [Unknown]
